FAERS Safety Report 9081074 (Version 1)
Quarter: 2013Q1

REPORT INFORMATION
  Report Type: Report from Study
  Country: US (occurrence: US)
  Receive Date: 20130130
  Receipt Date: 20130130
  Transmission Date: 20140127
  Serious: No
  Sender: FDA-Public Use
  Company Number: US-ABBOTT-12P-163-0962164-00

PATIENT
  Age: 59 Year
  Sex: Female

DRUGS (17)
  1. HUMIRA 40 MG/0.8 ML PEN [Suspect]
     Indication: RHEUMATOID ARTHRITIS
     Route: 058
     Dates: start: 201205
  2. METFORMIN [Concomitant]
     Indication: DIABETES MELLITUS
  3. LIPITOR [Concomitant]
     Indication: BLOOD CHOLESTEROL INCREASED
     Dosage: DAILY
  4. ASA [Concomitant]
     Indication: HYPERTENSION
     Dosage: DAILY
  5. COZAAR [Concomitant]
     Indication: HYPERTENSION
     Dosage: DAILY
  6. PRILOSEC [Concomitant]
     Indication: GASTROOESOPHAGEAL REFLUX DISEASE
     Dosage: DAILY
  7. ALLEGRA [Concomitant]
     Indication: HYPERSENSITIVITY
  8. METHOTREXATE [Concomitant]
     Indication: RHEUMATOID ARTHRITIS
  9. CONVALLARIA MAJALIS\CRATAEGUS LAEVIGATA LEAF\PROXYPHYLLINE [Concomitant]
     Indication: VITAMIN SUPPLEMENTATION
  10. GLUCOSAMINE [Concomitant]
     Indication: VITAMIN SUPPLEMENTATION
  11. LYRICA [Concomitant]
     Indication: FIBROMYALGIA
  12. CYMBALTA [Concomitant]
     Indication: RHEUMATOID ARTHRITIS
     Dosage: DAILY
  13. GABAPENTIN [Concomitant]
     Indication: PRODUCT USED FOR UNKNOWN INDICATION
     Dosage: AS BEDTIME
  14. TRAMADOL [Concomitant]
     Indication: PAIN
  15. IBUPROFEN [Concomitant]
     Indication: PAIN
  16. XANAX [Concomitant]
     Indication: ANXIETY
     Dosage: DAILY
  17. FLONASE [Concomitant]
     Indication: HYPERSENSITIVITY
     Dosage: 2 SPRAYS EACH NOSTRIL

REACTIONS (2)
  - Rash papular [Not Recovered/Not Resolved]
  - Rash pruritic [Not Recovered/Not Resolved]
